FAERS Safety Report 6384600-8 (Version None)
Quarter: 2009Q4

REPORT INFORMATION
  Report Type: 
  Country: None (occurrence: None)
  Receive Date: 20091001
  Receipt Date: 20090921
  Transmission Date: 20100525
  Serious: Yes (Hospitalization)
  Sender: FDA-Public Use
  Company Number: PHHY2009FR40867

PATIENT
  Sex: Male

DRUGS (9)
  1. TEGRETOL [Suspect]
     Dosage: 800 MG DAILY
  2. PLAVIX [Concomitant]
     Dosage: 75 MG, UNK
     Dates: end: 20090608
  3. NEURONTIN [Concomitant]
     Dosage: 400 MG, UNK
  4. TAREG [Concomitant]
     Dosage: 40 MG
  5. TARDYFERON [Concomitant]
     Dosage: UNK
     Dates: start: 20090401
  6. ZOCOR [Concomitant]
     Dosage: UNK
  7. TRIMETAZIDINE [Concomitant]
     Dosage: 35 MG, UNK
  8. LODOZ [Concomitant]
     Dosage: UNK
  9. BLOOD TRANSFUSION, AUXILIARY PRODUCTS [Concomitant]
     Dosage: 2 RBC PACKS

REACTIONS (11)
  - ABDOMINAL DISTENSION [None]
  - ABDOMINAL PAIN [None]
  - BLOOD PRESSURE INCREASED [None]
  - CREATININE RENAL CLEARANCE DECREASED [None]
  - EPSTEIN-BARR VIRUS INFECTION [None]
  - HAEMATOCRIT DECREASED [None]
  - HAEMOGLOBIN DECREASED [None]
  - ILEUS [None]
  - RECTAL HAEMORRHAGE [None]
  - RECTAL POLYP [None]
  - SENSORY DISTURBANCE [None]
